FAERS Safety Report 5977264-6 (Version None)
Quarter: 2008Q4

REPORT INFORMATION
  Report Type: 
  Country: None (occurrence: None)
  Receive Date: 20081203
  Receipt Date: 20081127
  Transmission Date: 20090506
  Serious: Yes (Hospitalization)
  Sender: FDA-Public Use
  Company Number: FR-ABBOTT-08P-056-0490091-00

PATIENT
  Sex: Male

DRUGS (1)
  1. DEPAKENE [Suspect]
     Indication: TEMPORAL LOBE EPILEPSY

REACTIONS (4)
  - DYSPNOEA [None]
  - OEDEMA [None]
  - PLEURISY [None]
  - PULMONARY FIBROSIS [None]
